FAERS Safety Report 13017024 (Version 1)
Quarter: 2016Q4

REPORT INFORMATION
  Report Type: Spontaneous
  Country: US (occurrence: US)
  Receive Date: 20161212
  Receipt Date: 20161212
  Transmission Date: 20170207
  Serious: Yes (Hospitalization, Disabling)
  Sender: FDA-Public Use
  Company Number: None

PATIENT
  Age: 45 Year
  Sex: Female
  Weight: 58.97 kg

DRUGS (1)
  1. BOTOX [Suspect]
     Active Substance: ONABOTULINUMTOXINA
     Indication: BLADDER SPASM
     Dates: start: 20160901

REACTIONS (4)
  - Muscular weakness [None]
  - Fall [None]
  - Urinary tract infection [None]
  - Visual impairment [None]

NARRATIVE: CASE EVENT DATE: 20160901
